FAERS Safety Report 25025948 (Version 1)
Quarter: 2025Q1

REPORT INFORMATION
  Report Type: Other
  Country: TR (occurrence: TR)
  Receive Date: 20250301
  Receipt Date: 20250301
  Transmission Date: 20250408
  Serious: Yes (Other)
  Sender: ANI
  Company Number: TR-ANIPHARMA-015794

PATIENT
  Age: 27 Year
  Sex: Male

DRUGS (1)
  1. PENICILLAMINE [Suspect]
     Active Substance: PENICILLAMINE
     Indication: Hepato-lenticular degeneration

REACTIONS (1)
  - Glomerulonephritis membranous [Recovering/Resolving]
